FAERS Safety Report 10229176 (Version 2)
Quarter: 2014Q2

REPORT INFORMATION
  Report Type: Spontaneous
  Country: US (occurrence: US)
  Receive Date: 20140611
  Receipt Date: 20140616
  Transmission Date: 20141212
  Serious: Yes (Other)
  Sender: FDA-Public Use
  Company Number: US-DRREDDYS-USA/USA/14/0040988

PATIENT
  Age: 66 Year
  Sex: Female
  Weight: 72.1 kg

DRUGS (9)
  1. FEXOFENADINE HCL  OTC [Suspect]
     Indication: HYPERSENSITIVITY
     Route: 048
     Dates: start: 2012
  2. AUGMENTIN [Suspect]
     Indication: VIRAL INFECTION
     Route: 065
     Dates: start: 2014
  3. AUGMENTIN [Suspect]
     Indication: PYREXIA
  4. AUGMENTIN [Suspect]
     Indication: HEADACHE
  5. AUGMENTIN [Suspect]
     Indication: OROPHARYNGEAL PAIN
  6. AUGMENTIN [Suspect]
     Indication: PAIN
  7. METOPROLOL [Concomitant]
     Indication: BLOOD PRESSURE
     Route: 065
  8. NASONEX [Concomitant]
     Indication: HYPERSENSITIVITY
     Route: 065
  9. AZELASTINE [Concomitant]
     Indication: HYPERSENSITIVITY
     Route: 065

REACTIONS (5)
  - Rectal haemorrhage [Recovered/Resolved]
  - Abdominal pain [Not Recovered/Not Resolved]
  - Diarrhoea [Recovered/Resolved]
  - Abdominal distension [Recovered/Resolved]
  - Flatulence [Recovered/Resolved]
